FAERS Safety Report 8199295-0 (Version None)
Quarter: 2012Q1

REPORT INFORMATION
  Report Type: 
  Country: None (occurrence: None)
  Receive Date: 20120309
  Receipt Date: 20120301
  Transmission Date: 20120608
  Serious: Yes (Hospitalization, Other)
  Sender: FDA-Public Use
  Company Number: PHHY2012BR018238

PATIENT
  Age: 35 Year
  Sex: Female

DRUGS (3)
  1. SCOPOLAMINE [Concomitant]
  2. BUFFERIN [Suspect]
     Dosage: 2 DF, QD
     Dates: start: 20120201
  3. BUFFERIN [Suspect]
     Indication: ABDOMINAL PAIN
     Dosage: 2 DF, DAY
     Route: 048
     Dates: start: 20111201

REACTIONS (3)
  - UTERINE HAEMORRHAGE [None]
  - DYSSTASIA [None]
  - HAEMORRHAGE [None]
